FAERS Safety Report 15648743 (Version 6)
Quarter: 2019Q4

REPORT INFORMATION
  Report Type: Report from Study
  Country: US (occurrence: US)
  Receive Date: 20181122
  Receipt Date: 20191223
  Transmission Date: 20200122
  Serious: Yes (Other)
  Sender: FDA-Public Use
  Company Number: PHHY2018US160211

PATIENT
  Age: 45 Year
  Sex: Female

DRUGS (2)
  1. GILENYA [Suspect]
     Active Substance: FINGOLIMOD HYDROCHLORIDE
     Indication: MULTIPLE SCLEROSIS
     Dosage: UNK, QD
     Route: 048
  2. IBUPROFEN. [Concomitant]
     Active Substance: IBUPROFEN
     Indication: PAIN
     Dosage: UNK
     Route: 065
     Dates: start: 20170929

REACTIONS (28)
  - Eye pain [Unknown]
  - Gait disturbance [Recovered/Resolved]
  - Stomatitis [Unknown]
  - Lymphadenopathy [Unknown]
  - Myalgia [Unknown]
  - Sleep disorder [Unknown]
  - Arthralgia [Recovered/Resolved]
  - Chills [Recovered/Resolved]
  - Ataxia [Recovered/Resolved]
  - Hyperphagia [Recovered/Resolved]
  - Tinnitus [Unknown]
  - Hypersensitivity [Unknown]
  - Hyperhidrosis [Unknown]
  - Disturbance in attention [Unknown]
  - Polydipsia [Unknown]
  - Palpitations [Unknown]
  - Temperature intolerance [Unknown]
  - Dizziness [Unknown]
  - Sneezing [Unknown]
  - Chest discomfort [Unknown]
  - Abdominal pain [Recovered/Resolved]
  - Otorrhoea [Unknown]
  - Visual impairment [Unknown]
  - Lymphocyte count decreased [Unknown]
  - Polyuria [Unknown]
  - Cough [Unknown]
  - Headache [Unknown]
  - Fatigue [Unknown]

NARRATIVE: CASE EVENT DATE: 20170509
